FAERS Safety Report 6333561-6 (Version None)
Quarter: 2009Q3

REPORT INFORMATION
  Report Type: 
  Country: None (occurrence: None)
  Receive Date: 20090829
  Receipt Date: 20090821
  Transmission Date: 20100115
  Serious: Yes (Hospitalization)
  Sender: FDA-Public Use
  Company Number: RU-RANBAXY-2009R3-26555

PATIENT

DRUGS (2)
  1. CIPROFLAXACIN [Suspect]
     Indication: ERYSIPELAS
     Dosage: 1000 MG, QD
     Route: 048
     Dates: start: 20090401, end: 20090401
  2. DETRALEX [Concomitant]
     Indication: VENOUS INSUFFICIENCY

REACTIONS (4)
  - ERYTHEMA [None]
  - FATIGUE [None]
  - PYREXIA [None]
  - SARCOIDOSIS [None]
